FAERS Safety Report 25358328 (Version 2)
Quarter: 2025Q2

REPORT INFORMATION
  Report Type: Report from Study
  Country: US (occurrence: US)
  Receive Date: 20250526
  Receipt Date: 20250604
  Transmission Date: 20250716
  Serious: No
  Sender: MALLINCKRODT
  Company Number: US-MALLINCKRODT-MNK202500863

PATIENT
  Age: 68 Year
  Sex: Female

DRUGS (8)
  1. CORTICOTROPIN [Suspect]
     Active Substance: CORTICOTROPIN
     Indication: Nephritic syndrome
     Dosage: 80 UNITS
     Route: 030
     Dates: start: 20250208
  2. CORTICOTROPIN [Suspect]
     Active Substance: CORTICOTROPIN
     Indication: Nephrotic syndrome
     Dates: start: 202503, end: 2025
  3. CORTICOTROPIN [Suspect]
     Active Substance: CORTICOTROPIN
     Dates: start: 202505
  4. SYSTANE (HYPROMELLOSE 2910 (4000 MPA.S)) [Concomitant]
     Active Substance: HYPROMELLOSE 2910 (4000 MPA.S)
     Route: 031
  5. PREDNISOLONE [Concomitant]
     Active Substance: PREDNISOLONE
     Route: 031
  6. FLUTICASONE [Concomitant]
     Active Substance: FLUTICASONE
     Route: 045
  7. LOSARTAN POTASSIUM [Concomitant]
     Active Substance: LOSARTAN POTASSIUM
     Route: 048
  8. PRAVASTATIN SODIUM [Concomitant]
     Active Substance: PRAVASTATIN SODIUM

REACTIONS (11)
  - Laboratory test abnormal [Unknown]
  - Emotional disorder [Not Recovered/Not Resolved]
  - Sciatica [Unknown]
  - Pain in extremity [Unknown]
  - Headache [Unknown]
  - Injection site pain [Unknown]
  - Injection site mass [Unknown]
  - Injection site bruising [Unknown]
  - Hypersensitivity [Unknown]
  - Product dose omission issue [Unknown]
  - Wrong technique in product usage process [Unknown]

NARRATIVE: CASE EVENT DATE: 20250101
